FAERS Safety Report 9719635 (Version 1)
Quarter: 2013Q4

REPORT INFORMATION
  Report Type: Spontaneous
  Country: US (occurrence: US)
  Receive Date: 20131128
  Receipt Date: 20131128
  Transmission Date: 20140711
  Serious: Yes (Other)
  Sender: FDA-Public Use
  Company Number: US-009507513-1311USA010988

PATIENT
  Sex: Female

DRUGS (4)
  1. SINGULAIR [Suspect]
     Dosage: UNK
     Route: 048
  2. HALCION [Suspect]
     Indication: SLEEP DISORDER THERAPY
     Dosage: UNK
  3. MONTELUKAST SODIUM [Suspect]
     Dosage: UNK
  4. INSULIN [Suspect]
     Dosage: UNK

REACTIONS (8)
  - Blood glucose increased [Unknown]
  - Choking [Unknown]
  - Tracheal disorder [Unknown]
  - Dyspnoea [Unknown]
  - Product taste abnormal [Unknown]
  - Drug ineffective [Unknown]
  - Insomnia [Unknown]
  - Nervousness [Unknown]
